FAERS Safety Report 4818890-7 (Version None)
Quarter: 2005Q4

REPORT INFORMATION
  Report Type: 
  Country: None (occurrence: None)
  Receive Date: 20051031
  Receipt Date: 20051025
  Transmission Date: 20060501
  Serious: Yes (Other)
  Sender: FDA-Public Use
  Company Number: CHWYE080621OCT05

PATIENT
  Age: 44 Year
  Sex: Female

DRUGS (5)
  1. EFFEXOR [Suspect]
     Indication: DEPRESSION
     Dosage: 225; 300; 225 MG 1X PER 1 DAY
     Route: 048
     Dates: start: 20030101, end: 20050101
  2. EFFEXOR [Suspect]
     Indication: DEPRESSION
     Dosage: 225; 300; 225 MG 1X PER 1 DAY
     Route: 048
     Dates: start: 20050101, end: 20050801
  3. EFFEXOR [Suspect]
     Indication: DEPRESSION
     Dosage: 225; 300; 225 MG 1X PER 1 DAY
     Route: 048
     Dates: start: 20050801
  4. LORAZEPAM [Concomitant]
  5. LAMICTAL [Concomitant]

REACTIONS (3)
  - COMPLICATED MIGRAINE [None]
  - PARAESTHESIA [None]
  - VOMITING [None]
